FAERS Safety Report 5500574-3 (Version None)
Quarter: 2007Q4

REPORT INFORMATION
  Report Type: 
  Country: None (occurrence: None)
  Receive Date: 20071029
  Receipt Date: 20071017
  Transmission Date: 20080405
  Serious: Yes (Death, Other)
  Sender: FDA-Public Use
  Company Number: GB-NOVOPROD-216906

PATIENT
  Age: 78 Year
  Sex: Male
  Weight: 79.4 kg

DRUGS (15)
  1. NOVOSEVEN [Suspect]
     Dosage: 7.2 MG, 2 HOURLY X 13
     Route: 042
     Dates: start: 20020527, end: 20020529
  2. NOVOSEVEN [Suspect]
     Dosage: 7.2 MG, 4 HOURLY X 4
     Dates: start: 20020527, end: 20020529
  3. TRANEXAMIC ACID [Concomitant]
     Dosage: 4 G, QD
     Route: 048
     Dates: start: 20020527, end: 20020528
  4. DILTIAZEM [Concomitant]
     Dosage: 360 MG, QD
     Route: 048
  5. DOXAZOSIN MESYLATE [Concomitant]
     Dosage: 8 MG, QD
     Route: 048
  6. PERINDROPRIL [Concomitant]
     Dosage: 2 MG, UNK
     Route: 048
     Dates: start: 20020529
  7. CEFTRIAXONE [Concomitant]
     Dosage: 1 G, QD
     Route: 042
     Dates: start: 20020529
  8. FLUCLOXACILLIN [Concomitant]
     Dosage: 2 G, UNK
     Route: 048
     Dates: start: 20020528
  9. FLUCLOXACILLIN [Concomitant]
     Dosage: 2 G, UNK
     Route: 042
  10. AMOXICILLIN [Concomitant]
     Dosage: 1.5 G, UNK
     Route: 048
     Dates: start: 20020528, end: 20020529
  11. AMOXICILLIN [Concomitant]
     Dosage: 1.5 G, UNK
     Route: 042
     Dates: start: 20020529
  12. PARACETAMOL [Concomitant]
     Dosage: 5 G, QD
     Route: 054
     Dates: start: 20020527
  13. PARACETAMOL [Concomitant]
     Dosage: 1 G, QD
     Route: 048
     Dates: start: 20020527
  14. SALBUTAMOL [Concomitant]
     Dosage: 5 MG, UNK
     Route: 055
     Dates: start: 20020531
  15. LACTULOSE [Concomitant]
     Dosage: UNK, UNK
     Route: 048
     Dates: start: 20020528

REACTIONS (1)
  - CEREBRAL INFARCTION [None]
